FAERS Safety Report 7114785-7 (Version None)
Quarter: 2010Q4

REPORT INFORMATION
  Report Type: 
  Country: None (occurrence: None)
  Receive Date: 20101122
  Receipt Date: 20101109
  Transmission Date: 20110411
  Serious: No
  Sender: FDA-Public Use
  Company Number: US-BIOGENIDEC-2010BI039282

PATIENT
  Age: 35 Year
  Sex: Female

DRUGS (1)
  1. TYSABRI [Suspect]
     Indication: MULTIPLE SCLEROSIS
     Route: 042
     Dates: start: 20100511

REACTIONS (7)
  - ACCIDENT [None]
  - CONTUSION [None]
  - FALL [None]
  - JOINT INJURY [None]
  - MOBILITY DECREASED [None]
  - URINARY TRACT INFECTION [None]
  - URTICARIA [None]
